FAERS Safety Report 10153750 (Version 1)
Quarter: 2014Q2

REPORT INFORMATION
  Report Type: Spontaneous
  Country: BR (occurrence: BR)
  Receive Date: 20140506
  Receipt Date: 20140506
  Transmission Date: 20141212
  Serious: Yes (Hospitalization)
  Sender: FDA-Public Use
  Company Number: BR-ROCHE-1392356

PATIENT
  Sex: Male
  Weight: 98 kg

DRUGS (3)
  1. RIVOTRIL [Suspect]
     Indication: SLEEP DISORDER
     Dosage: TAKEN ONE THIRD OF A TABLET
     Route: 065
     Dates: start: 2011
  2. RIVOTRIL [Suspect]
     Indication: ANXIETY
     Dosage: 5 DROPS AT NIGHT
     Route: 065
  3. ANGIPRESS (BRAZIL) [Concomitant]
     Indication: HYPERTENSION
     Route: 065

REACTIONS (4)
  - Prostatic disorder [Unknown]
  - Erectile dysfunction [Not Recovered/Not Resolved]
  - Premature ejaculation [Unknown]
  - Anxiety [Not Recovered/Not Resolved]
